FAERS Safety Report 4503986-X (Version None)
Quarter: 2004Q4

REPORT INFORMATION
  Report Type: 
  Country: None (occurrence: None)
  Receive Date: 20041115
  Receipt Date: 20041103
  Transmission Date: 20050328
  Serious: Yes (Other)
  Sender: FDA-Public Use
  Company Number: 2004NV000038

PATIENT
  Age: 21 Year
  Sex: Female
  Weight: 86.1834 kg

DRUGS (2)
  1. NOVANATAL [Suspect]
     Indication: VITAMIN SUPPLEMENTATION
     Dosage: 1 DF; QD
     Dates: start: 20041029, end: 20041101
  2. RHOGAM [Concomitant]

REACTIONS (4)
  - ABORTION SPONTANEOUS [None]
  - DRUG EXPOSURE DURING PREGNANCY [None]
  - FOETAL HEART RATE ABNORMAL [None]
  - METRORRHAGIA [None]
